FAERS Safety Report 14565164 (Version 2)
Quarter: 2019Q1

REPORT INFORMATION
  Report Type: Spontaneous
  Country: CA (occurrence: CA)
  Receive Date: 20180223
  Receipt Date: 20190321
  Transmission Date: 20190417
  Serious: Yes (Life-Threatening, Hospitalization, Disabling, Other)
  Sender: FDA-Public Use
  Company Number: US-ASTRAZENECA-2018SE20877

PATIENT
  Age: 56 Year
  Sex: Female
  Weight: 69 kg

DRUGS (14)
  1. ASPIRIN. [Suspect]
     Active Substance: ASPIRIN
     Indication: PRODUCT USED FOR UNKNOWN INDICATION
     Route: 048
  2. ASA [Suspect]
     Active Substance: ASPIRIN
     Route: 065
  3. AMLODIPINE BESILATE [Suspect]
     Active Substance: AMLODIPINE BESYLATE
     Indication: PRODUCT USED FOR UNKNOWN INDICATION
     Route: 048
  4. JANUVIA [Suspect]
     Active Substance: SITAGLIPTIN PHOSPHATE
     Route: 048
  5. IRBESARTAN. [Suspect]
     Active Substance: IRBESARTAN
     Indication: HYPERTENSION
     Route: 048
  6. ESOMEPRAZOLE MAGNESIUM. [Suspect]
     Active Substance: ESOMEPRAZOLE MAGNESIUM
     Route: 048
  7. LIPITOR [Suspect]
     Active Substance: ATORVASTATIN CALCIUM
     Route: 048
  8. GLUCOPHAGE [Concomitant]
     Active Substance: METFORMIN HYDROCHLORIDE
  9. METFORMIN HYDROCHLORIDE. [Suspect]
     Active Substance: METFORMIN HYDROCHLORIDE
     Route: 048
  10. AVAPRO [Suspect]
     Active Substance: IRBESARTAN
     Route: 065
  11. VITAMIN B12 [Concomitant]
     Active Substance: CYANOCOBALAMIN
  12. NORVASC [Suspect]
     Active Substance: AMLODIPINE BESYLATE
     Route: 048
  13. ALISKIREN [Suspect]
     Active Substance: ALISKIREN
     Indication: HYPERTENSION
     Route: 048
  14. IRBESARTAN. [Suspect]
     Active Substance: IRBESARTAN
     Indication: HYPERTENSION
     Route: 048

REACTIONS (23)
  - Nausea [Recovered/Resolved]
  - Confusional state [Recovered/Resolved]
  - Anxiety [Recovered/Resolved]
  - Coordination abnormal [Recovered/Resolved]
  - Hemiparesis [Recovered/Resolved]
  - Carotid artery thrombosis [Recovered/Resolved]
  - Motor dysfunction [Recovered/Resolved]
  - Neurologic neglect syndrome [Recovered/Resolved]
  - Hemiplegia [Recovered/Resolved]
  - Personality disorder [Recovered/Resolved]
  - Asthenia [Recovered/Resolved]
  - Dysphagia [Recovered/Resolved]
  - Affect lability [Recovered/Resolved]
  - Eating disorder [Recovered/Resolved]
  - Cerebrovascular accident [Recovered/Resolved]
  - Muscle spasticity [Recovered/Resolved]
  - Impaired work ability [Recovered/Resolved]
  - Dysarthria [Recovered/Resolved]
  - Fall [Recovered/Resolved]
  - Muscular weakness [Recovered/Resolved]
  - Aphasia [Recovered/Resolved]
  - Adjustment disorder [Recovered/Resolved]
  - Sensory loss [Recovered/Resolved]
